FAERS Safety Report 23476334 (Version 1)
Quarter: 2024Q1

REPORT INFORMATION
  Report Type: Report from Study
  Country: US (occurrence: US)
  Receive Date: 20240204
  Receipt Date: 20240204
  Transmission Date: 20240410
  Serious: No
  Sender: FDA-Public Use
  Company Number: US-EXELIXIS-CABO-23062505

PATIENT
  Age: 66 Year
  Sex: Female

DRUGS (12)
  1. CABOMETYX [Suspect]
     Active Substance: CABOZANTINIB S-MALATE
     Indication: Connective tissue neoplasm
     Dosage: 40 MG
     Dates: start: 20230311
  2. CABOMETYX [Suspect]
     Active Substance: CABOZANTINIB S-MALATE
     Indication: Soft tissue neoplasm
     Dosage: 40 MG, QOD
     Dates: start: 20230325
  3. CABOMETYX [Suspect]
     Active Substance: CABOZANTINIB S-MALATE
     Dosage: 20 MG
     Dates: start: 20230328, end: 20230401
  4. OPDIVO [Suspect]
     Active Substance: NIVOLUMAB
     Indication: Connective tissue neoplasm
     Dosage: UNK
     Dates: start: 20230311, end: 20230401
  5. OPDIVO [Suspect]
     Active Substance: NIVOLUMAB
     Indication: Soft tissue neoplasm
  6. YERVOY [Suspect]
     Active Substance: IPILIMUMAB
     Indication: Connective tissue neoplasm
     Dosage: UNK, Q3WEEKS
     Dates: start: 20230311, end: 20230401
  7. YERVOY [Suspect]
     Active Substance: IPILIMUMAB
     Indication: Soft tissue neoplasm
  8. ELIQUIS [Concomitant]
     Active Substance: APIXABAN
  9. GABAPENTIN [Concomitant]
     Active Substance: GABAPENTIN
  10. LEVOTHYROXINE [Concomitant]
     Active Substance: LEVOTHYROXINE\LEVOTHYROXINE SODIUM
  11. PRAVASTATIN [Concomitant]
     Active Substance: PRAVASTATIN
  12. NORVASC [Concomitant]
     Active Substance: AMLODIPINE BESYLATE

REACTIONS (10)
  - Myalgia [Unknown]
  - Hepatic enzyme increased [Recovering/Resolving]
  - Blood pressure increased [Recovering/Resolving]
  - Fatigue [Unknown]
  - Dry mouth [Unknown]
  - Taste disorder [Unknown]
  - Blood creatinine increased [Recovering/Resolving]
  - Product prescribing issue [Unknown]
  - Inappropriate schedule of product administration [Unknown]
  - Off label use [Unknown]

NARRATIVE: CASE EVENT DATE: 20230325
